FAERS Safety Report 18015972 (Version 1)
Quarter: 2020Q3

REPORT INFORMATION
  Report Type: Spontaneous
  Country: CA (occurrence: CA)
  Receive Date: 20200713
  Receipt Date: 20200713
  Transmission Date: 20201103
  Serious: Yes (Hospitalization)
  Sender: FDA-Public Use
  Company Number: CA-PFIZER INC-2020262603

PATIENT
  Age: 63 Year
  Sex: Male
  Weight: 56 kg

DRUGS (6)
  1. NAPROXEN. [Concomitant]
     Active Substance: NAPROXEN
  2. IBUPROFEN. [Concomitant]
     Active Substance: IBUPROFEN
  3. MULTIVITAMINS [VITAMINS NOS] [Concomitant]
     Active Substance: VITAMINS
  4. GAVISCON [ALGELDRATE;SODIUM ALGINATE] [Concomitant]
     Active Substance: ALGELDRATE\SODIUM ALGINATE
  5. IBUPROFEN. [Suspect]
     Active Substance: IBUPROFEN
     Indication: ARTHRALGIA
     Dosage: 800 MG, 2X/DAY (EVERY 12 HOURS)
     Route: 048
  6. NAPROXEN. [Suspect]
     Active Substance: NAPROXEN
     Indication: ARTHRALGIA
     Dosage: 220 MG, 2X/DAY (EVERY 12 HOURS)
     Route: 048

REACTIONS (4)
  - Haematemesis [Unknown]
  - Melaena [Unknown]
  - Product use issue [Unknown]
  - Duodenal ulcer [Unknown]
